FAERS Safety Report 4565259-9 (Version None)
Quarter: 2005Q1

REPORT INFORMATION
  Report Type: 
  Country: None (occurrence: None)
  Receive Date: 20050127
  Receipt Date: 20050127
  Transmission Date: 20050727
  Serious: Yes (Life-Threatening, Other)
  Sender: FDA-Public Use
  Company Number: None

PATIENT
  Age: 19 Year
  Sex: Male
  Weight: 65.7716 kg

DRUGS (1)
  1. OXYCONTIN [Suspect]
     Dosage: ORAL-CRUSHED
     Route: 048

REACTIONS (5)
  - ABNORMAL BEHAVIOUR [None]
  - DRUG DEPENDENCE [None]
  - HEPATITIS C [None]
  - IMPRISONMENT [None]
  - LEGAL PROBLEM [None]
